FAERS Safety Report 5017162-8 (Version None)
Quarter: 2006Q2

REPORT INFORMATION
  Report Type: 
  Country: None (occurrence: None)
  Receive Date: 20060525
  Receipt Date: 20060508
  Transmission Date: 20061013
  Serious: Yes (Death, Hospitalization, Other)
  Sender: FDA-Public Use
  Company Number: US_0510122808

PATIENT
  Age: 38 Year
  Sex: Male
  Weight: 74.8 kg

DRUGS (3)
  1. ZYPREXA [Suspect]
     Indication: AUTISM
     Dosage: 10 MG, DAILY (1/D); ORAL
     Route: 048
     Dates: start: 19980116, end: 20000701
  2. LORAZEPAM [Concomitant]
  3. ZOLOFT [Concomitant]

REACTIONS (9)
  - DIABETES MELLITUS [None]
  - DIABETIC COMA [None]
  - DIABETIC KETOACIDOSIS [None]
  - INSULIN RESISTANCE [None]
  - KETOACIDOSIS [None]
  - KETONURIA [None]
  - METABOLIC DISORDER [None]
  - PNEUMONIA ASPIRATION [None]
  - WEIGHT INCREASED [None]
